FAERS Safety Report 24316428 (Version 3)
Quarter: 2024Q4

REPORT INFORMATION
  Report Type: Spontaneous
  Country: NZ (occurrence: NZ)
  Receive Date: 20240913
  Receipt Date: 20241028
  Transmission Date: 20250115
  Serious: Yes (Hospitalization)
  Sender: MYLAN
  Company Number: NZ-MYLANLABS-2024M1082944

PATIENT
  Age: 71 Year
  Sex: Female

DRUGS (18)
  1. CLOZARIL [Suspect]
     Active Substance: CLOZAPINE
     Indication: Schizophrenia
     Dosage: 200 MILLIGRAM, QD (DAILY)
     Route: 048
     Dates: start: 19990901, end: 20240725
  2. CLOZARIL [Suspect]
     Active Substance: CLOZAPINE
     Dosage: 200 MILLIGRAM, QD (DAILY)
     Route: 048
     Dates: start: 20240819
  3. CLOZARIL [Suspect]
     Active Substance: CLOZAPINE
     Dosage: 100 MILLIGRAM, BID (TWICE A DAY)
     Route: 048
     Dates: start: 20240921
  4. CLOZARIL [Suspect]
     Active Substance: CLOZAPINE
     Dosage: 200 MILLIGRAM, QD  (200MG PO NOCTE)
     Route: 048
  5. VALPROATE SODIUM [Concomitant]
     Active Substance: VALPROATE SODIUM
     Dosage: UNK
     Route: 065
  6. VALPROATE SODIUM [Concomitant]
     Active Substance: VALPROATE SODIUM
     Dosage: 500 MILLIGRAM, BID (TWICE A DAY)
     Route: 048
  7. OXYBUTYNIN [Concomitant]
     Active Substance: OXYBUTYNIN
     Dosage: UNK
     Route: 065
  8. OXYBUTYNIN [Concomitant]
     Active Substance: OXYBUTYNIN
     Dosage: 5 MILLIGRAM, PM (AT NIGHT)
     Route: 048
  9. METFORMIN [Concomitant]
     Active Substance: METFORMIN HYDROCHLORIDE
     Dosage: UNK
     Route: 065
  10. METFORMIN [Concomitant]
     Active Substance: METFORMIN HYDROCHLORIDE
     Dosage: 1500 MILLIGRAM, AM (IN MORNING)
     Route: 048
  11. METFORMIN [Concomitant]
     Active Substance: METFORMIN HYDROCHLORIDE
     Dosage: 1000 MILLIGRAM, PM (AT NIGHT)
     Route: 048
  12. METFORMIN [Concomitant]
     Active Substance: METFORMIN HYDROCHLORIDE
     Dosage: 500 MILLIGRAM, BID (TWICE DAILY, REDUCED DUE TO POOR ORAL INTAKE DURING ADMISSION, COULD BE RESUMED
     Route: 048
  13. DOCUSATE SODIUM\SENNOSIDES A AND B [Concomitant]
     Active Substance: DOCUSATE SODIUM\SENNOSIDES A AND B
     Dosage: 2 DOSAGE FORM, PM (AT NIGHT)
     Route: 048
  14. ATORVASTATIN [Concomitant]
     Active Substance: ATORVASTATIN
     Dosage: 40 MILLIGRAM, PM (AT NIGHT)
     Route: 048
  15. POLYTEARS [Concomitant]
     Indication: Dry eye
     Dosage: UNK, BID (1-2 DROPS, PRN (WHEN NECESSARY))
     Route: 047
  16. FLUTICASONE [Concomitant]
     Active Substance: FLUTICASONE
     Indication: Nasal congestion
     Dosage: 1 DOSAGE FORM, BID (1 SPRAY IN NOSTRIL TWICE A DAY, PRN (WHEN NECESSARY))
     Route: 045
  17. FLUTICASONE [Concomitant]
     Active Substance: FLUTICASONE
     Indication: Nasal dryness
  18. POLYETHYLENE GLYCOL 3350\POTASSIUM CHLORIDE\SODIUM BICARBONATE\SODIUM [Concomitant]
     Active Substance: POLYETHYLENE GLYCOL 3350\POTASSIUM CHLORIDE\SODIUM BICARBONATE\SODIUM CHLORIDE
     Indication: Constipation
     Dosage: UNK, BID (1-2 SACHETS TWICE A DAY, PRN (WHEN NECESSARY))
     Route: 048

REACTIONS (5)
  - Antipsychotic drug level increased [Not Recovered/Not Resolved]
  - Liver function test abnormal [Recovered/Resolved]
  - Lymphocyte count increased [Not Recovered/Not Resolved]
  - Malaise [Unknown]
  - Bowel movement irregularity [Unknown]

NARRATIVE: CASE EVENT DATE: 20240913
